FAERS Safety Report 11383462 (Version 23)
Quarter: 2019Q1

REPORT INFORMATION
  Report Type: Report from Study
  Country: CA (occurrence: CA)
  Receive Date: 20150814
  Receipt Date: 20190116
  Transmission Date: 20190417
  Serious: Yes (Other)
  Sender: FDA-Public Use
  Company Number: PHHY2014CA157667

PATIENT
  Age: 83 Year
  Sex: Female

DRUGS (5)
  1. SANDOSTATIN LAR DEPOT [Suspect]
     Active Substance: OCTREOTIDE ACETATE
     Indication: NEUROENDOCRINE CARCINOMA METASTATIC
     Dosage: 30 MG, QMO (Q28 DAYS/EVERY 4 WEEKS)
     Route: 030
     Dates: start: 20121031
  2. HEPARIN [Concomitant]
     Active Substance: HEPARIN SODIUM
     Indication: PRODUCT USED FOR UNKNOWN INDICATION
     Route: 065
  3. FOLIC ACID. [Concomitant]
     Active Substance: FOLIC ACID
     Indication: PRODUCT USED FOR UNKNOWN INDICATION
     Dosage: 5 MG, UNK
     Route: 065
     Dates: start: 20161201
  4. SANDOSTATIN LAR DEPOT [Suspect]
     Active Substance: OCTREOTIDE ACETATE
     Dosage: 60 MG, QMO (EVERY 4 WEEKS)
     Route: 065
  5. METHOTREXATE. [Suspect]
     Active Substance: METHOTREXATE
     Indication: PERIPHERAL SWELLING
     Dosage: 5 ML, QW
     Route: 065
     Dates: start: 20161201

REACTIONS (34)
  - Nasopharyngitis [Unknown]
  - Cough [Unknown]
  - Flushing [Unknown]
  - Mass [Unknown]
  - Arthralgia [Recovering/Resolving]
  - Flatulence [Unknown]
  - Blood pressure increased [Unknown]
  - Rectal haemorrhage [Unknown]
  - Body temperature decreased [Unknown]
  - Abdominal discomfort [Unknown]
  - Contusion [Unknown]
  - Malaise [Unknown]
  - Arthritis [Unknown]
  - Peripheral swelling [Unknown]
  - Rheumatoid arthritis [Not Recovered/Not Resolved]
  - Erythema [Unknown]
  - Sleep disorder [Unknown]
  - Constipation [Unknown]
  - Rhinorrhoea [Unknown]
  - Stress [Unknown]
  - Injection site mass [Unknown]
  - Haemorrhoids [Unknown]
  - Pain in extremity [Unknown]
  - Body temperature increased [Unknown]
  - Joint swelling [Unknown]
  - Fall [Unknown]
  - Forearm fracture [Recovering/Resolving]
  - Bowel movement irregularity [Unknown]
  - Anaemia [Unknown]
  - Fatigue [Unknown]
  - Lower respiratory tract infection [Unknown]
  - Skin laceration [Recovering/Resolving]
  - Pallor [Unknown]
  - Bone erosion [Unknown]

NARRATIVE: CASE EVENT DATE: 2014
